FAERS Safety Report 6257451-2 (Version None)
Quarter: 2009Q2

REPORT INFORMATION
  Report Type: 
  Country: None (occurrence: None)
  Receive Date: 20090630
  Receipt Date: 20090630
  Transmission Date: 20091009
  Serious: Yes (Other)
  Sender: FDA-Public Use
  Company Number: None

PATIENT
  Age: 89 Year
  Sex: Male
  Weight: 73.0291 kg

DRUGS (1)
  1. REMERON [Suspect]
     Indication: INCREASED APPETITE
     Dates: start: 20090415, end: 20090418

REACTIONS (4)
  - ASTHENIA [None]
  - HALLUCINATION [None]
  - HALLUCINATION, VISUAL [None]
  - SOMNOLENCE [None]
